FAERS Safety Report 7090344-X (Version None)
Quarter: 2010Q4

REPORT INFORMATION
  Report Type: 
  Country: None (occurrence: None)
  Receive Date: 20101012
  Receipt Date: 20100820
  Transmission Date: 20110411
  Serious: No
  Sender: FDA-Public Use
  Company Number: US-001272

PATIENT
  Sex: Female
  Weight: 59 kg

DRUGS (2)
  1. KUVAN [Suspect]
     Indication: PHENYLKETONURIA
     Dosage: (1200 MG QD ORAL), (800 MG QD ORAL)
     Route: 048
     Dates: start: 20080101, end: 20100601
  2. KUVAN [Suspect]
     Indication: PHENYLKETONURIA
     Dosage: (1200 MG QD ORAL), (800 MG QD ORAL)
     Route: 048
     Dates: start: 20100601

REACTIONS (1)
  - NAUSEA [None]
